FAERS Safety Report 7117555-9 (Version None)
Quarter: 2010Q4

REPORT INFORMATION
  Report Type: 
  Country: None (occurrence: None)
  Receive Date: 20101122
  Receipt Date: 20101118
  Transmission Date: 20110411
  Serious: Yes (Other)
  Sender: FDA-Public Use
  Company Number: AU-RB-001414-10

PATIENT
  Age: 36 Year
  Sex: Female
  Weight: 83 kg

DRUGS (2)
  1. SUBOXONE [Suspect]
     Indication: PRODUCT USED FOR UNKNOWN INDICATION
     Route: 048
     Dates: start: 20090706, end: 20090929
  2. SUBOXONE [Suspect]
     Route: 048
     Dates: start: 20090930

REACTIONS (3)
  - HALLUCINATIONS, MIXED [None]
  - INSOMNIA [None]
  - MUSCLE TWITCHING [None]
